FAERS Safety Report 9050352 (Version 1)
Quarter: 2013Q1

REPORT INFORMATION
  Report Type: Spontaneous
  Country: US (occurrence: US)
  Receive Date: 20130205
  Receipt Date: 20130205
  Transmission Date: 20140127
  Serious: Yes (Other)
  Sender: FDA-Public Use
  Company Number: US-BAYER-2013-012138

PATIENT
  Sex: Male

DRUGS (1)
  1. ALKA-SELTZER PLUS COLD + COUGH [Suspect]
     Route: 048

REACTIONS (2)
  - Choking [None]
  - Foreign body [None]
